FAERS Safety Report 4643731-0 (Version None)
Quarter: 2005Q2

REPORT INFORMATION
  Report Type: 
  Country: None (occurrence: None)
  Receive Date: 20050425
  Receipt Date: 20050319
  Transmission Date: 20051028
  Serious: Yes (Disabling, Other)
  Sender: FDA-Public Use
  Company Number: 200513535GDDC

PATIENT
  Age: 50 Year
  Sex: Female

DRUGS (3)
  1. KETEK [Suspect]
     Indication: SINUSITIS
     Route: 048
     Dates: start: 20050314, end: 20050318
  2. REBIF [Concomitant]
     Indication: MULTIPLE SCLEROSIS
     Route: 058
     Dates: start: 20010101
  3. CALCIUM GLUCONATE [Concomitant]
     Dosage: DOSE: UNK
     Route: 048

REACTIONS (2)
  - HYPOAESTHESIA [None]
  - PARALYSIS [None]
